FAERS Safety Report 9629668 (Version 7)
Quarter: 2014Q1

REPORT INFORMATION
  Report Type: Report from Study
  Country: FR (occurrence: FR)
  Receive Date: 20131017
  Receipt Date: 20140210
  Transmission Date: 20141002
  Serious: Yes (Death, Hospitalization, Other)
  Sender: FDA-Public Use
  Company Number: FR-GLAXOSMITHKLINE-B0862576B

PATIENT
  Age: 74 Year
  Sex: Male
  Weight: 59 kg

DRUGS (9)
  1. OFATUMUMAB [Suspect]
     Indication: CHRONIC LYMPHOCYTIC LEUKAEMIA
     Route: 042
     Dates: start: 20121204, end: 20130502
  2. BENDAMUSTINE [Suspect]
     Indication: CHRONIC LYMPHOCYTIC LEUKAEMIA
     Route: 042
     Dates: start: 20121213, end: 20130504
  3. METHYLPREDNISOLONE [Suspect]
     Indication: CHRONIC LYMPHOCYTIC LEUKAEMIA
     Route: 042
     Dates: start: 20121212, end: 20130502
  4. BACTRIM [Concomitant]
     Indication: INFECTION PROPHYLAXIS
     Dosage: 400MG PER DAY
     Route: 048
     Dates: start: 20121212
  5. ORACILLINE [Concomitant]
     Indication: INFECTION PROPHYLAXIS
     Dosage: 1MU PER DAY
     Route: 048
     Dates: start: 20121212
  6. ZELITREX [Concomitant]
     Indication: INFECTION PROPHYLAXIS
     Dosage: 1G PER DAY
     Route: 048
     Dates: start: 20121212
  7. INSULIN [Concomitant]
     Indication: HYPERGLYCAEMIA
     Route: 058
     Dates: start: 20130116
  8. LEDERFOLINE [Concomitant]
     Indication: ANAEMIA
     Dosage: 25MG WEEKLY
     Route: 048
  9. FRAGMINE [Concomitant]
     Indication: THROMBOSIS
     Dosage: 10MU PER DAY
     Route: 058
     Dates: start: 20130524

REACTIONS (2)
  - Hypogammaglobulinaemia [Fatal]
  - Diarrhoea [Recovered/Resolved with Sequelae]
